FAERS Safety Report 15711721 (Version 1)
Quarter: 2018Q4

REPORT INFORMATION
  Report Type: Spontaneous
  Country: PT (occurrence: PT)
  Receive Date: 20181212
  Receipt Date: 20181212
  Transmission Date: 20190205
  Serious: Yes (Disabling)
  Sender: FDA-Public Use
  Company Number: PT-PFIZER INC-2018505383

PATIENT
  Age: 75 Year
  Sex: Male
  Weight: 70 kg

DRUGS (2)
  1. INLYTA [Suspect]
     Active Substance: AXITINIB
     Indication: RENAL CELL CARCINOMA
     Dosage: 10 MG, 1X/DAY
     Route: 048
     Dates: start: 20170712, end: 201806
  2. PRAVASTATINA AUROBINDO [Concomitant]
     Route: 048

REACTIONS (4)
  - Vertigo [Recovering/Resolving]
  - Hypothyroidism [Recovering/Resolving]
  - Weight decreased [Recovering/Resolving]
  - Hallucination, auditory [Recovering/Resolving]

NARRATIVE: CASE EVENT DATE: 201805
